FAERS Safety Report 13002234 (Version 1)
Quarter: 2016Q4

REPORT INFORMATION
  Report Type: Spontaneous
  Country: US (occurrence: US)
  Receive Date: 20161206
  Receipt Date: 20161206
  Transmission Date: 20170207
  Serious: No
  Sender: FDA-Public Use
  Company Number: US-GLAXOSMITHKLINE-US2016176743

PATIENT
  Age: 57 Year
  Sex: Male

DRUGS (2)
  1. TRANSDERM SCOP [Suspect]
     Active Substance: SCOPOLAMINE
     Indication: NAUSEA
     Dosage: UNK
  2. TRANSDERM SCOP [Suspect]
     Active Substance: SCOPOLAMINE
     Dosage: UNK

REACTIONS (4)
  - Application site irritation [Recovered/Resolved]
  - Application site erythema [Recovered/Resolved]
  - Off label use [Unknown]
  - Application site discomfort [Recovered/Resolved]
